FAERS Safety Report 17130127 (Version 1)
Quarter: 2019Q4

REPORT INFORMATION
  Report Type: Spontaneous
  Country: CN (occurrence: CN)
  Receive Date: 20191209
  Receipt Date: 20191209
  Transmission Date: 20200122
  Serious: Yes (Other)
  Sender: FDA-Public Use
  Company Number: CN-PFIZER INC-2019529238

PATIENT
  Age: 41 Year
  Sex: Female

DRUGS (2)
  1. ZYVOX [Suspect]
     Active Substance: LINEZOLID
     Indication: INFECTION
     Dosage: 0.6 G, ONCE A DAY
     Route: 041
     Dates: start: 20191125, end: 20191125
  2. RIFAMPICIN [Suspect]
     Active Substance: RIFAMPIN
     Indication: INFECTION
     Dosage: 2 DF, 1X/DAY
     Route: 048
     Dates: start: 20191125, end: 20191125

REACTIONS (3)
  - Gastrointestinal disorder [Recovering/Resolving]
  - Nausea [Recovering/Resolving]
  - Decreased appetite [Recovering/Resolving]

NARRATIVE: CASE EVENT DATE: 20191125
